FAERS Safety Report 5875161-8 (Version None)
Quarter: 2008Q3

REPORT INFORMATION
  Report Type: 
  Country: None (occurrence: None)
  Receive Date: 20080909
  Receipt Date: 20080903
  Transmission Date: 20090109
  Serious: Yes (Hospitalization)
  Sender: FDA-Public Use
  Company Number: US-AMGEN-US303381

PATIENT
  Sex: Male

DRUGS (4)
  1. PALIFERMIN - BLINDED [Suspect]
     Indication: GRAFT VERSUS HOST DISEASE
     Route: 042
     Dates: start: 20080809, end: 20080818
  2. MELPHALAN [Concomitant]
     Dates: start: 20080817
  3. METHOTREXATE [Concomitant]
     Dates: start: 20080820
  4. TACROLIMUS [Concomitant]
     Route: 042
     Dates: start: 20080816

REACTIONS (2)
  - ATRIAL FIBRILLATION [None]
  - CAECITIS [None]
